FAERS Safety Report 9386180 (Version 2)
Quarter: 2013Q3

REPORT INFORMATION
  Report Type: Spontaneous
  Country: US (occurrence: US)
  Receive Date: 20130707
  Receipt Date: 20130814
  Transmission Date: 20140515
  Serious: Yes (Other)
  Sender: FDA-Public Use
  Company Number: US-UCBSA-090764

PATIENT
  Age: 65 Year
  Sex: Female
  Weight: 48.8 kg

DRUGS (10)
  1. VIMPAT [Suspect]
     Indication: CONVULSION
     Dosage: EVERY NIGHT AT BED TIME
     Dates: start: 2010, end: 2010
  2. VIMPAT [Suspect]
     Indication: CONVULSION
     Dosage: DECREASED DOSE, EVERY NIGHT AT BED TIME
     Dates: start: 2010
  3. NEURONTIN [Concomitant]
     Indication: CONVULSION
  4. RAMAPRIL [Concomitant]
     Indication: HYPERTENSION
  5. TEGRETOL XR [Concomitant]
     Indication: CONVULSION
  6. BYSTALIC [Concomitant]
     Indication: HYPERTENSION
  7. PHENOBARBITAL [Concomitant]
     Indication: CONVULSION
     Dosage: EVERY NIGHT AT BED TIME
  8. ASA [Concomitant]
     Dates: start: 201207, end: 201302
  9. LIPITOR [Concomitant]
     Indication: LOW DENSITY LIPOPROTEIN INCREASED
  10. SYNTHROID [Concomitant]
     Indication: THYROID HORMONE REPLACEMENT THERAPY

REACTIONS (5)
  - Cerebrovascular accident [Recovered/Resolved with Sequelae]
  - Hyperthyroidism [Recovered/Resolved]
  - Carotid artery occlusion [Unknown]
  - Somnolence [Recovered/Resolved]
  - Fatigue [Recovered/Resolved]
